FAERS Safety Report 9467349 (Version 6)
Quarter: 2013Q4

REPORT INFORMATION
  Report Type: Report from Study
  Country: ZM (occurrence: ZM)
  Receive Date: 20130821
  Receipt Date: 20131022
  Transmission Date: 20140711
  Serious: Yes (Life-Threatening, Hospitalization)
  Sender: FDA-Public Use
  Company Number: ZM-BRISTOL-MYERS SQUIBB COMPANY-19021575

PATIENT
  Age: 35 Year
  Sex: Female
  Weight: 51.6 kg

DRUGS (8)
  1. STOCRIN CAPS [Suspect]
     Indication: HIV INFECTION
     Dosage: 11MAR13-2JUN13?18JUN13-UNK
     Route: 048
     Dates: start: 20130311
  2. TENOFOVIR DF + EMTRICITABINE [Suspect]
     Indication: HIV INFECTION
     Dosage: 1DF:200/300MG,11MAR13-02MAR13.?11MAR13-2JUN13?18JUN13-UNK?EMTRICITABINE:200MG:18JUN13.
     Route: 048
     Dates: start: 20130311
  3. ISONIAZID + RIFAMPICIN [Suspect]
     Dosage: 1DF:300/600MG:12MAR13-03JUN13?LAST DOSE: 06AUG2013
     Route: 048
     Dates: start: 20130507, end: 20130819
  4. SEPTRIN [Suspect]
     Indication: INFECTION PROPHYLAXIS
     Dosage: MAY-2013: UNKN DOSE DAILY
     Route: 048
     Dates: start: 20130306, end: 20130603
  5. FLUCONAZOLE [Suspect]
     Indication: BODY TINEA
     Dosage: 06MAR13-10MAR13:200MG?25MAR13-07APR13:400MG
     Route: 048
     Dates: start: 20130528, end: 20130531
  6. FLUCONAZOLE [Suspect]
     Indication: ORAL CANDIDIASIS
     Dosage: 06MAR13-10MAR13:200MG?25MAR13-07APR13:400MG
     Route: 048
     Dates: start: 20130528, end: 20130531
  7. DAPSONE [Suspect]
     Indication: PROPHYLAXIS
     Route: 048
     Dates: start: 20130717, end: 20130805
  8. PYRIDOXINE [Suspect]
     Indication: PROPHYLAXIS
     Route: 048
     Dates: start: 201303, end: 20130806

REACTIONS (3)
  - Drug-induced liver injury [Recovered/Resolved]
  - Blood sodium abnormal [Recovered/Resolved]
  - Oesophageal candidiasis [Recovered/Resolved]
